FAERS Safety Report 5358573-0 (Version None)
Quarter: 2007Q2

REPORT INFORMATION
  Report Type: 
  Country: None (occurrence: None)
  Receive Date: 20070615
  Receipt Date: 20070606
  Transmission Date: 20071010
  Serious: Yes (Death)
  Sender: FDA-Public Use
  Company Number: BE-JNJFOC-20070405692

PATIENT
  Sex: Female
  Weight: 45 kg

DRUGS (4)
  1. DURAGESIC-100 [Suspect]
     Indication: CANCER PAIN
     Route: 062
  2. DURAGESIC-100 [Suspect]
     Indication: NEOPLASM MALIGNANT
     Route: 062
  3. DURAGESIC-100 [Suspect]
     Indication: BREAKTHROUGH PAIN
     Route: 062
  4. CYTOSTATICS [Suspect]
     Indication: DRUG USE FOR UNKNOWN INDICATION
     Route: 065

REACTIONS (4)
  - BREAKTHROUGH PAIN [None]
  - PHARMACEUTICAL PRODUCT COMPLAINT [None]
  - PLEURISY [None]
  - SARCOMA [None]
